FAERS Safety Report 5151359-1 (Version None)
Quarter: 2006Q4

REPORT INFORMATION
  Report Type: 
  Country: None (occurrence: None)
  Receive Date: 20061114
  Receipt Date: 20061114
  Transmission Date: 20070319
  Serious: Yes (Disabling)
  Sender: FDA-Public Use
  Company Number: None

PATIENT
  Sex: Female
  Weight: 131.5431 kg

DRUGS (1)
  1. EQUATE PAIN RELIEVER 500 MG PERRIGO [Suspect]
     Indication: PAIN
     Dosage: 2/6 HRS
     Dates: start: 20060901, end: 20061109

REACTIONS (11)
  - CRYING [None]
  - DYSPEPSIA [None]
  - FUNGAL INFECTION [None]
  - HEADACHE [None]
  - MALAISE [None]
  - OESOPHAGEAL PAIN [None]
  - PHARMACEUTICAL PRODUCT COMPLAINT [None]
  - PHARYNGOLARYNGEAL PAIN [None]
  - PNEUMONIA [None]
  - ULCER [None]
  - UPPER RESPIRATORY TRACT INFECTION [None]
